FAERS Safety Report 22959068 (Version 2)
Quarter: 2024Q1

REPORT INFORMATION
  Report Type: Spontaneous
  Country: US (occurrence: US)
  Receive Date: 20230919
  Receipt Date: 20240215
  Transmission Date: 20240410
  Serious: Yes (Life-Threatening, Hospitalization, Other)
  Sender: FDA-Public Use
  Company Number: US-009507513-2309USA004470

PATIENT
  Age: 85 Year
  Sex: Male

DRUGS (1)
  1. KEYTRUDA [Suspect]
     Active Substance: PEMBROLIZUMAB
     Indication: Adenocarcinoma gastric
     Dosage: 200-MG INFUSIONS ONCE EVERY 3 WEEKS
     Dates: start: 202003, end: 202005

REACTIONS (3)
  - Immune-mediated myocarditis [Recovered/Resolved]
  - Immune-mediated myositis [Recovered/Resolved]
  - Immune-mediated hepatitis [Recovered/Resolved]

NARRATIVE: CASE EVENT DATE: 20200301
